FAERS Safety Report 8047235-7 (Version None)
Quarter: 2012Q1

REPORT INFORMATION
  Report Type: 
  Country: None (occurrence: None)
  Receive Date: 20120116
  Receipt Date: 20120111
  Transmission Date: 20120608
  Serious: Yes (Life-Threatening)
  Sender: FDA-Public Use
  Company Number: FR-SANOFI-AVENTIS-2011SA041771

PATIENT
  Age: 62 Year
  Sex: Male

DRUGS (2)
  1. PREVISCAN [Interacting]
     Route: 048
     Dates: end: 20110415
  2. PLAVIX [Suspect]
     Route: 048
     Dates: end: 20110415

REACTIONS (2)
  - CARDIAC TAMPONADE [None]
  - DRUG INTERACTION [None]
